FAERS Safety Report 13834419 (Version 2)
Quarter: 2018Q1

REPORT INFORMATION
  Report Type: Report from Study
  Country: US (occurrence: US)
  Receive Date: 20170804
  Receipt Date: 20180119
  Transmission Date: 20180508
  Serious: No
  Sender: FDA-Public Use
  Company Number: PHEH2017US024343

PATIENT
  Sex: Female
  Weight: 28.5 kg

DRUGS (1)
  1. OMNITROPE [Suspect]
     Active Substance: SOMATROPIN
     Indication: HYPOPITUITARISM
     Dosage: 1.4 MG, QD X 6 DAYS/W EEK
     Route: 058
     Dates: start: 201703

REACTIONS (1)
  - Incorrect dose administered by device [Not Recovered/Not Resolved]
